FAERS Safety Report 5400993-X (Version None)
Quarter: 2007Q3

REPORT INFORMATION
  Report Type: 
  Country: None (occurrence: None)
  Receive Date: 20070730
  Receipt Date: 20070727
  Transmission Date: 20080115
  Serious: Yes (Hospitalization, Other)
  Sender: FDA-Public Use
  Company Number: FR-BRISTOL-MYERS SQUIBB COMPANY-13400098

PATIENT
  Age: 81 Year
  Sex: Female

DRUGS (2)
  1. COAPROVEL TABS 300MG/12.5MG [Suspect]
     Route: 048
  2. DETENSIEL [Concomitant]

REACTIONS (1)
  - IDIOPATHIC THROMBOCYTOPENIC PURPURA [None]
